FAERS Safety Report 9553016 (Version 1)
Quarter: 2013Q3

REPORT INFORMATION
  Report Type: Spontaneous
  Country: US (occurrence: US)
  Receive Date: 20130925
  Receipt Date: 20130925
  Transmission Date: 20140515
  Serious: No
  Sender: FDA-Public Use
  Company Number: US-B.I. PHARMACEUTICALS,INC./RIDGEFIELD-2013-BI-29335BP

PATIENT
  Age: 62 Year
  Sex: Male

DRUGS (1)
  1. MIRAPEX [Suspect]
     Dosage: 1.5 MG
     Route: 048
     Dates: start: 201306, end: 201306

REACTIONS (4)
  - Somnolence [Recovered/Resolved]
  - Memory impairment [Recovered/Resolved]
  - Sleep disorder [Recovered/Resolved]
  - Road traffic accident [Recovered/Resolved]
